FAERS Safety Report 16408901 (Version 1)
Quarter: 2019Q2

REPORT INFORMATION
  Report Type: Spontaneous
  Country: US (occurrence: US)
  Receive Date: 20190610
  Receipt Date: 20190610
  Transmission Date: 20190711
  Serious: Yes (Hospitalization, Other)
  Sender: FDA-Public Use
  Company Number: US-ELI_LILLY_AND_COMPANY-US201905016171

PATIENT
  Sex: Female

DRUGS (3)
  1. TOUJEO [Concomitant]
     Active Substance: INSULIN GLARGINE
     Indication: TYPE 1 DIABETES MELLITUS
     Dosage: 17 U, DAILY (NIGHT)
  2. HUMALOG [Suspect]
     Active Substance: INSULIN LISPRO
     Indication: TYPE 1 DIABETES MELLITUS
     Dosage: UNK UNK, PRN
     Route: 058
     Dates: start: 2009
  3. HUMALOG [Suspect]
     Active Substance: INSULIN LISPRO
     Dosage: UNK UNK, PRN
     Route: 058

REACTIONS (18)
  - Transient ischaemic attack [Recovering/Resolving]
  - Infection [Recovering/Resolving]
  - Diabetic coma [Recovered/Resolved]
  - Blood glucose decreased [Recovering/Resolving]
  - Diabetic coma [Recovering/Resolving]
  - Glycosylated haemoglobin increased [Unknown]
  - Asthenia [Recovering/Resolving]
  - Incorrect route of product administration [Recovering/Resolving]
  - Dementia [Not Recovered/Not Resolved]
  - Blood glucose increased [Unknown]
  - Head injury [Recovered/Resolved]
  - Fall [Recovered/Resolved]
  - Blood glucose abnormal [Recovered/Resolved]
  - Blood glucose abnormal [Recovering/Resolving]
  - Blood glucose decreased [Recovered/Resolved]
  - Coronary artery occlusion [Recovering/Resolving]
  - Urinary tract infection [Recovered/Resolved]
  - Fatigue [Recovering/Resolving]

NARRATIVE: CASE EVENT DATE: 2015
